FAERS Safety Report 5689558-2 (Version None)
Quarter: 2008Q1

REPORT INFORMATION
  Report Type: 
  Country: None (occurrence: None)
  Receive Date: 20080328
  Receipt Date: 20080319
  Transmission Date: 20080703
  Serious: Yes (Disabling)
  Sender: FDA-Public Use
  Company Number: WAES 0802USA06353

PATIENT
  Age: 70 Year
  Sex: Male

DRUGS (6)
  1. COZAAR [Suspect]
     Indication: DIABETIC NEPHROPATHY
     Dosage: 25 MG DAILY PO
     Route: 048
     Dates: start: 20061212, end: 20070424
  2. COZAAR [Suspect]
     Indication: HYPERTENSION
     Dosage: 25 MG DAILY PO
     Route: 048
     Dates: start: 20061212, end: 20070424
  3. AMLODIN [Concomitant]
  4. CARDENALIN [Concomitant]
  5. DAONIL [Concomitant]
  6. LIVALO [Concomitant]

REACTIONS (3)
  - CONDITION AGGRAVATED [None]
  - DIABETIC NEPHROPATHY [None]
  - DIALYSIS [None]
